FAERS Safety Report 24578427 (Version 1)
Quarter: 2024Q4

REPORT INFORMATION
  Report Type: Spontaneous
  Country: US (occurrence: None)
  Receive Date: 20241105
  Receipt Date: 20241105
  Transmission Date: 20250115
  Serious: Yes (Life-Threatening, Hospitalization)
  Sender: NORMON
  Company Number: US-MLMSERVICE-20241017-PI230813-00256-1

PATIENT
  Age: 80 Year
  Sex: Female

DRUGS (5)
  1. PANTOPRAZOLE [Suspect]
     Active Substance: PANTOPRAZOLE
  2. APIXABAN [Concomitant]
     Active Substance: APIXABAN
  3. ATORVASTATIN [Concomitant]
     Active Substance: ATORVASTATIN
  4. METOPROLOL [Concomitant]
     Active Substance: METOPROLOL
  5. SYMBICORT [Concomitant]
     Active Substance: BUDESONIDE\FORMOTEROL FUMARATE DIHYDRATE

REACTIONS (7)
  - Hypomagnesaemia [Recovered/Resolved]
  - Hypocalcaemia [Recovered/Resolved]
  - Hypokalaemia [Recovered/Resolved]
  - Generalised tonic-clonic seizure [Unknown]
  - Stress cardiomyopathy [Unknown]
  - Blood parathyroid hormone increased [Unknown]
  - Blood phosphorus increased [Recovered/Resolved]
